FAERS Safety Report 5924098-4 (Version None)
Quarter: 2008Q3

REPORT INFORMATION
  Report Type: 
  Country: None (occurrence: None)
  Receive Date: 20080909
  Receipt Date: 20080331
  Transmission Date: 20090109
  Serious: Yes (Hospitalization)
  Sender: FDA-Public Use
  Company Number: 163-20785-08031969

PATIENT
  Age: 64 Year
  Sex: Female

DRUGS (2)
  1. THALOMID [Suspect]
     Indication: MULTIPLE MYELOMA
     Dosage: 200 MG, 1 IN 1 D, ORAL : 200 MG, 4 IN 1 D, ORAL
     Route: 048
     Dates: start: 20080228, end: 20080301
  2. THALOMID [Suspect]
     Indication: MULTIPLE MYELOMA
     Dosage: 200 MG, 1 IN 1 D, ORAL : 200 MG, 4 IN 1 D, ORAL
     Route: 048
     Dates: start: 20080331

REACTIONS (2)
  - ANAEMIA [None]
  - PNEUMONIA [None]
